FAERS Safety Report 24977847 (Version 1)
Quarter: 2025Q1

REPORT INFORMATION
  Report Type: Spontaneous
  Country: US (occurrence: US)
  Receive Date: 20250217
  Receipt Date: 20250217
  Transmission Date: 20250409
  Serious: No
  Sender: PFIZER
  Company Number: US-PFIZER INC-202500033923

PATIENT
  Age: 58 Year
  Sex: Male

DRUGS (1)
  1. BOSULIF [Suspect]
     Active Substance: BOSUTINIB MONOHYDRATE
     Dosage: INCREASE DOSE BY 1 TAB EVERY WEEK UNTIL REACHING 4 TABS (400 MG) DAILY
     Route: 048
     Dates: start: 20250210

REACTIONS (3)
  - Dry mouth [Unknown]
  - Headache [Unknown]
  - Neoplasm progression [Unknown]

NARRATIVE: CASE EVENT DATE: 20250210
